FAERS Safety Report 4781162-3 (Version None)
Quarter: 2005Q3

REPORT INFORMATION
  Report Type: 
  Country: None (occurrence: None)
  Receive Date: 20050927
  Receipt Date: 20050927
  Transmission Date: 20060218
  Serious: Yes (Hospitalization, Other)
  Sender: FDA-Public Use
  Company Number: None

PATIENT
  Sex: Female
  Weight: 53.3 kg

DRUGS (3)
  1. CYTARABINE [Suspect]
     Indication: ACUTE MYELOID LEUKAEMIA
     Dosage: SEE IMAGE
     Dates: start: 20041106, end: 20041112
  2. DAUNORUBICIN HCL [Suspect]
     Dosage: SEE IMAGE
     Dates: start: 20041106
  3. ZOSUQUIDAR [Suspect]
     Dosage: SEE IMAGE
     Dates: start: 20041106

REACTIONS (2)
  - CARDIAC FAILURE CONGESTIVE [None]
  - WHEEZING [None]
